FAERS Safety Report 8310080-9 (Version None)
Quarter: 2012Q2

REPORT INFORMATION
  Report Type: 
  Country: None (occurrence: None)
  Receive Date: 20120425
  Receipt Date: 20120416
  Transmission Date: 20120825
  Serious: Yes (Hospitalization, Other)
  Sender: FDA-Public Use
  Company Number: MUTUAL PHARMACEUTICAL COMPANY, INC.-CLHC20120031

PATIENT
  Age: 71 Year
  Sex: Female

DRUGS (2)
  1. METHOTREXATE [Suspect]
     Indication: BEHCET'S SYNDROME
     Route: 065
     Dates: start: 20020101, end: 20050825
  2. COLCHICINE [Suspect]
     Indication: BEHCET'S SYNDROME
     Route: 048
     Dates: start: 20050823, end: 20050825

REACTIONS (3)
  - WHITE BLOOD CELL MORPHOLOGY ABNORMAL [None]
  - LEUKOPENIA [None]
  - BONE MARROW FAILURE [None]
